FAERS Safety Report 4861655-0 (Version None)
Quarter: 2005Q4

REPORT INFORMATION
  Report Type: 
  Country: None (occurrence: None)
  Receive Date: 20051130
  Receipt Date: 20041203
  Transmission Date: 20060501
  Serious: Yes (Other)
  Sender: FDA-Public Use
  Company Number: 200420967BWH

PATIENT
  Age: 53 Year
  Sex: Female

DRUGS (4)
  1. CIPRO [Suspect]
     Indication: DIVERTICULITIS
     Dosage: 500 MG, TOTAL DAILY, ORAL
     Route: 048
     Dates: start: 20010101
  2. CIPRO [Suspect]
     Indication: DIVERTICULITIS
     Dosage: 500 MG, TOTAL DAILY, ORAL
     Route: 048
     Dates: start: 20010101
  3. HORMONE REPLACEMENT THERAPY [Concomitant]
     Dates: start: 20020101
  4. CALCIUM SUPPLEMENT [Concomitant]

REACTIONS (13)
  - ARTHRALGIA [None]
  - DIFFICULTY IN WALKING [None]
  - FOOT DEFORMITY [None]
  - JOINT SPRAIN [None]
  - LIGAMENT RUPTURE [None]
  - MUSCLE STRAIN [None]
  - OSTEOARTHRITIS [None]
  - PAIN IN EXTREMITY [None]
  - TENDON DISORDER [None]
  - TENDON INJURY [None]
  - TENDON RUPTURE [None]
  - TENDONITIS [None]
  - TENOSYNOVITIS [None]
